FAERS Safety Report 11444465 (Version 1)
Quarter: 2015Q3

REPORT INFORMATION
  Report Type: Report from Study
  Country: US (occurrence: US)
  Receive Date: 20150902
  Receipt Date: 20150902
  Transmission Date: 20151125
  Serious: No
  Sender: FDA-Public Use
  Company Number: US-AMGEN-USASP2015086803

PATIENT
  Age: 38 Year
  Sex: Female

DRUGS (5)
  1. ENBREL [Suspect]
     Active Substance: ETANERCEPT
     Indication: PSORIATIC ARTHROPATHY
     Dosage: 50 MG, QWK
     Route: 065
  2. OMEPRAZOLE. [Concomitant]
     Active Substance: OMEPRAZOLE
     Dosage: UNK
  3. CLARITIN [Concomitant]
     Active Substance: LORATADINE
     Dosage: UNK
  4. ASTELIN                            /00884002/ [Concomitant]
     Dosage: UNK
  5. NASONEX [Concomitant]
     Active Substance: MOMETASONE FUROATE
     Dosage: UNK

REACTIONS (6)
  - Drug dose omission [Unknown]
  - Injection site erythema [Recovered/Resolved]
  - Decreased appetite [Unknown]
  - Blood glucose decreased [Unknown]
  - Incorrect product storage [Unknown]
  - Malaise [Unknown]
